FAERS Safety Report 9095096 (Version 1)
Quarter: 2013Q1

REPORT INFORMATION
  Report Type: Spontaneous
  Country: US (occurrence: None)
  Receive Date: 20130215
  Receipt Date: 20130215
  Transmission Date: 20140127
  Serious: No
  Sender: FDA-Public Use
  Company Number: None

PATIENT
  Age: 7 Year
  Sex: Male
  Weight: 22.68 kg

DRUGS (3)
  1. ZYPREXA [Suspect]
     Indication: AFFECTIVE DISORDER
     Route: 048
     Dates: start: 20111216, end: 20120123
  2. ZYPREXA [Suspect]
     Indication: AUTISM SPECTRUM DISORDER
     Route: 048
     Dates: start: 20111216, end: 20120123
  3. ZYPREXA [Suspect]
     Indication: OPPOSITIONAL DEFIANT DISORDER
     Route: 048
     Dates: start: 20111216, end: 20120123

REACTIONS (4)
  - Product substitution issue [None]
  - Psychomotor hyperactivity [None]
  - Aggression [None]
  - Abnormal behaviour [None]
